FAERS Safety Report 21509981 (Version 1)
Quarter: 2022Q4

REPORT INFORMATION
  Report Type: Spontaneous
  Country: US (occurrence: US)
  Receive Date: 20221026
  Receipt Date: 20221026
  Transmission Date: 20230113
  Serious: No
  Sender: FDA-Public Use
  Company Number: US-SA-SAC20221020000779

PATIENT
  Sex: Male
  Weight: 99.773 kg

DRUGS (15)
  1. NEXVIAZYME [Suspect]
     Active Substance: AVALGLUCOSIDASE ALFA-NGPT
     Indication: Glycogen storage disease type II
     Dosage: 200 MG QOW
     Route: 042
     Dates: start: 20220806
  2. DIPHENHYDRAMINE [Concomitant]
     Active Substance: DIPHENHYDRAMINE
  3. ALBUTEROL SULFATE [Concomitant]
     Active Substance: ALBUTEROL SULFATE
  4. MELATONIN [Concomitant]
     Active Substance: MELATONIN
  5. VITAMINS [Concomitant]
     Active Substance: VITAMINS
  6. EPINEPHRINE [Concomitant]
     Active Substance: EPINEPHRINE
  7. SPIRONOLACTONE [Concomitant]
     Active Substance: SPIRONOLACTONE
  8. ACETAMINOPHEN [Concomitant]
     Active Substance: ACETAMINOPHEN
  9. STERILE WATER [Concomitant]
     Active Substance: WATER
  10. SINGULAIR [Concomitant]
     Active Substance: MONTELUKAST SODIUM
  11. PROAIR HFA [Concomitant]
     Active Substance: ALBUTEROL SULFATE
  12. SOLU-CORTEF [Concomitant]
     Active Substance: HYDROCORTISONE SODIUM SUCCINATE
  13. MONTELUKAST SODIUM [Concomitant]
     Active Substance: MONTELUKAST SODIUM
  14. SODIUM CHLORIDE [Concomitant]
     Active Substance: SODIUM CHLORIDE
  15. DEXTROSE [Concomitant]
     Active Substance: DEXTROSE

REACTIONS (1)
  - Skin irritation [Unknown]
